FAERS Safety Report 12991522 (Version 1)
Quarter: 2016Q4

REPORT INFORMATION
  Report Type: Spontaneous
  Country: US (occurrence: US)
  Receive Date: 20161201
  Receipt Date: 20161201
  Transmission Date: 20170207
  Serious: No
  Sender: FDA-Public Use
  Company Number: US-ENDO PHARMACEUTICALS INC.-2016-003540

PATIENT
  Age: 42 Year
  Sex: Female
  Weight: 53.12 kg

DRUGS (4)
  1. ALPRAZOLAM TABLETS 2 MG [Suspect]
     Active Substance: ALPRAZOLAM
     Indication: INSOMNIA
     Route: 048
     Dates: start: 2014
  2. ALPRAZOLAM TABLETS 2 MG [Suspect]
     Active Substance: ALPRAZOLAM
     Indication: ARTHRITIS
  3. ALPRAZOLAM TABLETS 2 MG [Suspect]
     Active Substance: ALPRAZOLAM
     Indication: FIBROMYALGIA
  4. ALPRAZOLAM TABLETS 2 MG [Suspect]
     Active Substance: ALPRAZOLAM
     Indication: POST-TRAUMATIC STRESS DISORDER

REACTIONS (4)
  - Drug ineffective [Unknown]
  - Product taste abnormal [Unknown]
  - Product colour issue [Unknown]
  - Intentional product misuse [Unknown]

NARRATIVE: CASE EVENT DATE: 201605
